FAERS Safety Report 20590254 (Version 5)
Quarter: 2022Q4

REPORT INFORMATION
  Report Type: Spontaneous
  Country: CA (occurrence: CA)
  Receive Date: 20220314
  Receipt Date: 20221006
  Transmission Date: 20230113
  Serious: Yes (Other)
  Sender: FDA-Public Use
  Company Number: CA-PFIZER INC-202101862674

PATIENT
  Age: 36 Year
  Sex: Female
  Weight: 112 kg

DRUGS (7)
  1. RUXIENCE [Suspect]
     Active Substance: RITUXIMAB-PVVR
     Indication: Rheumatoid arthritis
     Dosage: 1000 MG, DAY 1 AND 15
     Route: 042
  2. RUXIENCE [Suspect]
     Active Substance: RITUXIMAB-PVVR
     Indication: Sjogren^s syndrome
     Dosage: 1000 MG, DAY 1 AND 15
     Route: 042
     Dates: start: 20220208, end: 20220329
  3. RUXIENCE [Suspect]
     Active Substance: RITUXIMAB-PVVR
     Indication: Tubulointerstitial nephritis
     Dosage: 1000 MG, DAY 1 AND 15
     Route: 042
     Dates: start: 20220329
  4. RUXIENCE [Suspect]
     Active Substance: RITUXIMAB-PVVR
     Dosage: 1000 MG, DAY 1 AND 15
     Route: 042
     Dates: start: 20220929
  5. FISH OIL [Concomitant]
     Active Substance: FISH OIL
     Dosage: 600 MG, DOSAGE FREQUENCY: UNKNOWN
     Route: 048
  6. PREDNISONE [Concomitant]
     Active Substance: PREDNISONE
     Dosage: 10 MG, DOSAGE FREQUENCY: UNKNOWN
     Route: 048
  7. TYLENOL [Concomitant]
     Active Substance: ACETAMINOPHEN
     Dosage: 500 MG, DOSAGE FREQUENCY: UNKNOWN
     Route: 048

REACTIONS (8)
  - Nephrolithiasis [Unknown]
  - Inappropriate schedule of product administration [Unknown]
  - Off label use [Unknown]
  - Intentional product use issue [Unknown]
  - Renal disorder [Not Recovered/Not Resolved]
  - COVID-19 [Recovered/Resolved]
  - Feeling hot [Unknown]
  - Influenza like illness [Unknown]

NARRATIVE: CASE EVENT DATE: 20220201
